FAERS Safety Report 9458602 (Version 1)
Quarter: 2013Q3

REPORT INFORMATION
  Report Type: Spontaneous
  Country: US (occurrence: None)
  Receive Date: 20130813
  Receipt Date: 20130813
  Transmission Date: 20140515
  Serious: Yes (Other)
  Sender: FDA-Public Use
  Company Number: None

PATIENT
  Age: 72 Year
  Sex: Female

DRUGS (1)
  1. NODOZ [Suspect]
     Indication: HYPERVIGILANCE
     Dosage: 1 DF,  QD,  ORAL
     Route: 048

REACTIONS (6)
  - Carpal tunnel syndrome [None]
  - Therapeutic response unexpected [None]
  - Off label use [None]
  - Incorrect drug administration duration [None]
  - Surgical failure [None]
  - Shoulder arthroplasty [None]
